FAERS Safety Report 5912293-X (Version None)
Quarter: 2008Q4

REPORT INFORMATION
  Report Type: 
  Country: None (occurrence: None)
  Receive Date: 20081008
  Receipt Date: 20080930
  Transmission Date: 20090506
  Serious: Yes (Other)
  Sender: FDA-Public Use
  Company Number: GB-ROCHE-589088

PATIENT
  Sex: Female

DRUGS (4)
  1. IBANDRONIC ACID [Suspect]
     Indication: OSTEOPOROSIS
     Route: 048
     Dates: start: 20070204
  2. ARTHROTEC [Concomitant]
     Indication: ARTHRITIS
     Route: 048
     Dates: start: 19980101
  3. OXYCODONE HCL [Concomitant]
     Indication: BACK PAIN
     Route: 048
  4. CALCICHEW [Concomitant]
     Indication: OSTEOPOROSIS
     Route: 048

REACTIONS (2)
  - ILL-DEFINED DISORDER [None]
  - MYALGIA [None]
